FAERS Safety Report 8114988-9 (Version None)
Quarter: 2012Q1

REPORT INFORMATION
  Report Type: 
  Country: None (occurrence: None)
  Receive Date: 20120206
  Receipt Date: 20120125
  Transmission Date: 20120608
  Serious: Yes (Hospitalization)
  Sender: FDA-Public Use
  Company Number: US-CELGENEUS-163-20785-11120576

PATIENT
  Sex: Female

DRUGS (1)
  1. THALOMID [Suspect]
     Indication: PLASMACYTOMA
     Dosage: 50 MILLIGRAM
     Route: 048
     Dates: start: 20081101

REACTIONS (2)
  - NAUSEA [None]
  - PNEUMONITIS [None]
